FAERS Safety Report 4825706-1 (Version None)
Quarter: 2005Q4

REPORT INFORMATION
  Report Type: 
  Country: None (occurrence: None)
  Receive Date: 20051109
  Receipt Date: 20051101
  Transmission Date: 20060501
  Serious: Yes (Hospitalization)
  Sender: FDA-Public Use
  Company Number: 200519636GDDC

PATIENT
  Age: 61 Year
  Sex: Female

DRUGS (2)
  1. ARAVA [Suspect]
     Indication: RHEUMATOID ARTHRITIS
     Dosage: 20 MG PO
     Route: 048
     Dates: start: 20050701, end: 20051027
  2. ETORICOXIB (ARCOXIA) [Concomitant]

REACTIONS (7)
  - ANAEMIA [None]
  - HEPATITIS [None]
  - HEPATOMEGALY [None]
  - LEUKOPENIA [None]
  - MYALGIA [None]
  - NAUSEA [None]
  - VOMITING [None]
